FAERS Safety Report 11231354 (Version 1)
Quarter: 2015Q2

REPORT INFORMATION
  Report Type: Spontaneous
  Country: US (occurrence: None)
  Receive Date: 20150616
  Receipt Date: 20150616
  Transmission Date: 20150821
  Serious: Yes (Other)
  Sender: FDA-Public Use
  Company Number: USW201504-000102

PATIENT
  Age: 80 Year
  Sex: Male

DRUGS (1)
  1. APOKYN [Suspect]
     Active Substance: APOMORPHINE HYDROCHLORIDE
     Indication: PARKINSON^S DISEASE
     Dosage: ONCE SITE ABDOMEN,
     Route: 058
     Dates: start: 20150412, end: 20150412

REACTIONS (3)
  - Hyperhidrosis [None]
  - Pallor [None]
  - Hypotension [None]

NARRATIVE: CASE EVENT DATE: 20150412
